FAERS Safety Report 9292244 (Version 1)
Quarter: 2013Q1

REPORT INFORMATION
  Report Type: Spontaneous
  Country: US (occurrence: None)
  Receive Date: 20121214
  Receipt Date: 20121214
  Transmission Date: 20140127
  Serious: Yes (Hospitalization)
  Sender: FDA-Public Use
  Company Number: 1210USA002606

PATIENT
  Age: 54 Year
  Sex: Male

DRUGS (4)
  1. JANUVIA (SITAGLIPTIN PHOSPHATE) FILM-COATED TABLET [Suspect]
     Indication: TYPE 2 DIABETES MELLITUS
     Route: 048
     Dates: start: 201201, end: 20120409
  2. METFORMIN [Concomitant]
  3. LISINOPRIL [Concomitant]
  4. AMBIEN [Concomitant]

REACTIONS (1)
  - Pancreatitis [None]
